FAERS Safety Report 6976058-2 (Version None)
Quarter: 2010Q3

REPORT INFORMATION
  Report Type: 
  Country: None (occurrence: None)
  Receive Date: 20100910
  Receipt Date: 20100901
  Transmission Date: 20110219
  Serious: Yes (Other)
  Sender: FDA-Public Use
  Company Number: FR-ASTRAZENECA-2010SE41671

PATIENT
  Age: 737 Month
  Sex: Male

DRUGS (3)
  1. IRESSA [Suspect]
     Route: 048
     Dates: start: 20100727, end: 20100830
  2. LEVOTHYROXINE SODIUM [Concomitant]
  3. ACETAMINOPHEN [Concomitant]

REACTIONS (6)
  - ASTHENIA [None]
  - CYTOLYTIC HEPATITIS [None]
  - DECREASED APPETITE [None]
  - NAUSEA [None]
  - RASH [None]
  - WEIGHT DECREASED [None]
